FAERS Safety Report 8943022 (Version 2)
Quarter: 2013Q2

REPORT INFORMATION
  Report Type: Spontaneous
  Country: KR (occurrence: KR)
  Receive Date: 20121204
  Receipt Date: 20130529
  Transmission Date: 20140414
  Serious: Yes (Death)
  Sender: FDA-Public Use
  Company Number: KR-EISAI INC-E2080-00576-SPO-KR

PATIENT
  Age: 133 Month
  Sex: 0

DRUGS (2)
  1. RUFINAMIDE [Suspect]
     Indication: LENNOX-GASTAUT SYNDROME
     Dosage: 18.1 MG/KG/DAY
     Route: 048
  2. RUFINAMIDE [Suspect]
     Dosage: 36.4 MG/KG/DAY
     Route: 048

REACTIONS (1)
  - Drowning [Fatal]
